FAERS Safety Report 7412998-8 (Version None)
Quarter: 2011Q2

REPORT INFORMATION
  Report Type: 
  Country: None (occurrence: None)
  Receive Date: 20110413
  Receipt Date: 20110404
  Transmission Date: 20111010
  Serious: Yes (Death, Hospitalization, Other)
  Sender: FDA-Public Use
  Company Number: PHHY2011US28241

PATIENT
  Age: 78 Year
  Sex: Female

DRUGS (11)
  1. AMLODIPINE [Concomitant]
     Dosage: 10 MG, UNK
  2. ERGOCALCIFEROL [Concomitant]
     Dosage: 1.25 MG, QD
  3. METOPROLOL TARTRATE [Concomitant]
     Dosage: 100 MG, UNK
  4. ROSUVASTATIN [Concomitant]
     Dosage: 5 MG, QD
  5. FUROSEMIDE [Concomitant]
     Dosage: 20 MG, QW
  6. METFORMIN [Suspect]
     Indication: TYPE 2 DIABETES MELLITUS
     Dosage: 850 MG, BID
  7. ZOLEDRONIC ACID [Suspect]
     Indication: OSTEOPOROSIS
     Dosage: 5 MG/ML, UNK
  8. GLIMEPIRIDE [Concomitant]
     Dosage: 1 MG, QD
  9. NATEGLINIDE [Concomitant]
     Dosage: 60 MG, QD
  10. INDAPAMIDE [Concomitant]
     Dosage: 2.5 MG, UNK
  11. HAEMOFILTRATION [Suspect]

REACTIONS (17)
  - PROTEINURIA [None]
  - OLIGURIA [None]
  - LACTIC ACIDOSIS [None]
  - TOXICITY TO VARIOUS AGENTS [None]
  - OEDEMA PERIPHERAL [None]
  - BLOOD PRESSURE DECREASED [None]
  - RESPIRATORY RATE DECREASED [None]
  - RENAL DISORDER [None]
  - UNRESPONSIVE TO STIMULI [None]
  - DRUG LEVEL INCREASED [None]
  - HYPOTHERMIA [None]
  - ANURIA [None]
  - METABOLIC ACIDOSIS [None]
  - DRY SKIN [None]
  - RENAL FAILURE ACUTE [None]
  - PUPILLARY REFLEX IMPAIRED [None]
  - HEART RATE DECREASED [None]
